FAERS Safety Report 18234496 (Version 2)
Quarter: 2022Q4

REPORT INFORMATION
  Report Type: Report from Study
  Country: CA (occurrence: CA)
  Receive Date: 20200904
  Receipt Date: 20221123
  Transmission Date: 20230113
  Serious: Yes (Other)
  Sender: FDA-Public Use
  Company Number: CA-NOVARTISPH-NVSC2020CA238161

PATIENT
  Sex: Male

DRUGS (3)
  1. ERELZI [Suspect]
     Active Substance: ETANERCEPT-SZZS
     Indication: Juvenile idiopathic arthritis
     Dosage: 50 MG, QW
     Route: 058
     Dates: start: 20180825, end: 202102
  2. METHOTREXATE [Concomitant]
     Active Substance: METHOTREXATE
     Indication: Product used for unknown indication
     Dosage: 25 MG, QW
     Route: 065
  3. NAPROXEN [Concomitant]
     Active Substance: NAPROXEN
     Indication: Product used for unknown indication
     Dosage: UNK
     Route: 065

REACTIONS (4)
  - Juvenile idiopathic arthritis [Unknown]
  - Rectal haemorrhage [Unknown]
  - Inflammatory bowel disease [Unknown]
  - Abdominal pain [Unknown]
